FAERS Safety Report 11557944 (Version 1)
Quarter: 2015Q3

REPORT INFORMATION
  Report Type: Spontaneous
  Country: US (occurrence: None)
  Receive Date: 20150925
  Receipt Date: 20150925
  Transmission Date: 20151125
  Serious: No
  Sender: FDA-Public Use
  Company Number: None

PATIENT
  Sex: Female

DRUGS (1)
  1. CLIMARA [Suspect]
     Active Substance: ESTRADIOL
     Indication: MENOPAUSAL SYMPTOMS
     Dosage: 24HR PATCH
     Dates: start: 200709, end: 200910

REACTIONS (4)
  - Hyperhidrosis [None]
  - Headache [None]
  - Acne [None]
  - Drug ineffective [None]
